FAERS Safety Report 8839486 (Version 2)
Quarter: 2012Q4

REPORT INFORMATION
  Report Type: 
  Country: JP (occurrence: JP)
  Receive Date: 20121015
  Receipt Date: 20121031
  Transmission Date: 20130627
  Serious: Yes (Hospitalization, Other)
  Sender: FDA-Public Use
  Company Number: JP-JNJFOC-20121005646

PATIENT
  Age: 46 Year
  Sex: Female

DRUGS (4)
  1. REMICADE [Suspect]
     Indication: COLITIS ULCERATIVE
     Route: 042
  2. IMURAN [Suspect]
     Indication: COLITIS ULCERATIVE
     Route: 048
  3. PREDNISOLONE [Suspect]
     Indication: COLITIS ULCERATIVE
     Route: 065
  4. MESALAZINE [Suspect]
     Indication: COLITIS ULCERATIVE
     Route: 065

REACTIONS (3)
  - Posterior reversible encephalopathy syndrome [Unknown]
  - Megacolon [Unknown]
  - Drug ineffective [Unknown]
